FAERS Safety Report 10199098 (Version 1)
Quarter: 2014Q2

REPORT INFORMATION
  Report Type: Spontaneous
  Country: US (occurrence: US)
  Receive Date: 20140527
  Receipt Date: 20140527
  Transmission Date: 20141212
  Serious: No
  Sender: FDA-Public Use
  Company Number: US-NOVEN-13US008296

PATIENT
  Sex: Male
  Weight: 22.68 kg

DRUGS (3)
  1. DAYTRANA [Suspect]
     Indication: ATTENTION DEFICIT/HYPERACTIVITY DISORDER
     Dosage: 30 MG, UNK
     Route: 062
  2. RISPERIDONE [Concomitant]
     Indication: INSOMNIA
     Dosage: 0.75 MG, UNK
     Route: 048
     Dates: start: 201301
  3. MELATONIN [Concomitant]
     Indication: INSOMNIA
     Dosage: 3-6 MG, UNK
     Route: 048
     Dates: start: 2009

REACTIONS (5)
  - Wrong technique in drug usage process [Recovered/Resolved]
  - Incorrect drug administration duration [Recovered/Resolved]
  - Product quality issue [Unknown]
  - Drug administration error [Recovered/Resolved]
  - No adverse event [Unknown]
